FAERS Safety Report 8429816-1 (Version None)
Quarter: 2012Q2

REPORT INFORMATION
  Report Type: 
  Country: None (occurrence: None)
  Receive Date: 20120612
  Receipt Date: 20120604
  Transmission Date: 20120825
  Serious: Yes (Other)
  Sender: FDA-Public Use
  Company Number: US-GENZYME-FABR-1002556

PATIENT
  Sex: Female
  Weight: 64 kg

DRUGS (1)
  1. FABRAZYME [Suspect]
     Indication: FABRY'S DISEASE
     Dosage: 1.1 MG/KG, Q2W
     Route: 042
     Dates: start: 20050601

REACTIONS (2)
  - MEDICAL DEVICE COMPLICATION [None]
  - CARDIAC PACEMAKER INSERTION [None]
